FAERS Safety Report 6531681-4 (Version None)
Quarter: 2010Q1

REPORT INFORMATION
  Report Type: 
  Country: None (occurrence: None)
  Receive Date: 20100107
  Receipt Date: 20100107
  Transmission Date: 20100710
  Serious: Yes (Hospitalization)
  Sender: FDA-Public Use
  Company Number: None

PATIENT
  Age: 78 Year
  Sex: Male
  Weight: 78 kg

DRUGS (2)
  1. MEPERIDINE HCL [Suspect]
     Indication: PAIN
     Dosage: 75 MG ONCE IM
     Route: 030
     Dates: start: 20091008, end: 20091028
  2. PROMETHAZINE [Suspect]
     Dosage: 25 MG ONCE IM
     Route: 030
     Dates: start: 20091008, end: 20091008

REACTIONS (8)
  - ACTIVITIES OF DAILY LIVING IMPAIRED [None]
  - CONFUSIONAL STATE [None]
  - COORDINATION ABNORMAL [None]
  - DIZZINESS [None]
  - FALL [None]
  - SEDATION [None]
  - SPEECH DISORDER [None]
  - URINARY INCONTINENCE [None]
